FAERS Safety Report 9914560 (Version 1)
Quarter: 2014Q1

REPORT INFORMATION
  Report Type: Spontaneous
  Country: IT (occurrence: IT)
  Receive Date: 20140220
  Receipt Date: 20140220
  Transmission Date: 20141002
  Serious: Yes (Hospitalization)
  Sender: FDA-Public Use
  Company Number: FR-TAKEDA-2014TUS001191

PATIENT
  Sex: 0

DRUGS (9)
  1. ADENURIC [Suspect]
     Indication: HYPERURICAEMIA
     Dosage: 20 MG, BID
     Route: 065
     Dates: start: 201309, end: 20140206
  2. KANRENOL [Concomitant]
  3. TRIATEC                            /00885601/ [Concomitant]
  4. LASIX                              /00032601/ [Concomitant]
  5. CARDICOR [Concomitant]
  6. BICARBONATE [Concomitant]
  7. NORVASC [Concomitant]
  8. LEKOVIT CA [Concomitant]
  9. NITROGLYCERIN [Concomitant]

REACTIONS (5)
  - Neck pain [Recovering/Resolving]
  - Hallucination [Unknown]
  - Pain in extremity [Recovering/Resolving]
  - Thrombocytopenia [Unknown]
  - Oedema [Recovering/Resolving]
